FAERS Safety Report 21713905 (Version 1)
Quarter: 2022Q4

REPORT INFORMATION
  Report Type: Spontaneous
  Country: US (occurrence: US)
  Receive Date: 20221212
  Receipt Date: 20221212
  Transmission Date: 20230112
  Serious: Yes (Hospitalization)
  Sender: FDA-Public Use
  Company Number: US-MYLANLABS-2022M1136894

PATIENT
  Age: 32 Year
  Sex: Female

DRUGS (12)
  1. QUETIAPINE [Interacting]
     Active Substance: QUETIAPINE
     Indication: Insomnia
     Dosage: 25 MILLIGRAM, QD (QUETIAPINE 25MG NIGHTLY)
     Route: 065
  2. DEXAMETHASONE [Suspect]
     Active Substance: DEXAMETHASONE
     Indication: COVID-19
     Dosage: UNK
     Route: 065
  3. CITALOPRAM [Interacting]
     Active Substance: CITALOPRAM HYDROBROMIDE
     Indication: Major depression
     Dosage: 30 MILLIGRAM, QD
     Route: 065
  4. CITALOPRAM [Interacting]
     Active Substance: CITALOPRAM HYDROBROMIDE
     Indication: Anxiety disorder
  5. PROCHLORPERAZINE [Suspect]
     Active Substance: PROCHLORPERAZINE
     Indication: Nausea
     Dosage: 5 MILLIGRAM (ON THE DAY 4 AND DAY 5 OF HOSPITALIZATION)
     Route: 042
  6. ONDANSETRON [Suspect]
     Active Substance: ONDANSETRON
     Indication: Nausea
     Dosage: UNK (TOTAL OF 14MG INTRAVENOUS (IV) ONDANSETRON)
     Route: 042
  7. ONDANSETRON [Suspect]
     Active Substance: ONDANSETRON
     Dosage: 2 MILLIGRAM
     Route: 042
  8. REMDESIVIR [Interacting]
     Active Substance: REMDESIVIR
     Indication: COVID-19
     Dosage: UNK
     Route: 065
  9. APIXABAN [Concomitant]
     Active Substance: APIXABAN
     Indication: Deep vein thrombosis
     Dosage: UNK
     Route: 065
  10. APIXABAN [Concomitant]
     Active Substance: APIXABAN
     Indication: Pulmonary embolism
  11. HYDROMORPHONE [Concomitant]
     Active Substance: HYDROMORPHONE
     Indication: Product used for unknown indication
     Dosage: UNK
     Route: 065
  12. LORAZEPAM [Concomitant]
     Active Substance: LORAZEPAM
     Indication: Product used for unknown indication
     Dosage: UNK
     Route: 065

REACTIONS (6)
  - Bradycardia [Recovered/Resolved]
  - Electrocardiogram QT prolonged [Recovered/Resolved]
  - Drug clearance decreased [Unknown]
  - Torsade de pointes [Recovered/Resolved]
  - Drug interaction [Unknown]
  - Off label use [Unknown]
